FAERS Safety Report 4638330-0 (Version None)
Quarter: 2005Q2

REPORT INFORMATION
  Report Type: 
  Country: None (occurrence: None)
  Receive Date: 20050415
  Receipt Date: 20050408
  Transmission Date: 20051028
  Serious: Yes (Life-Threatening, Hospitalization)
  Sender: FDA-Public Use
  Company Number: OSCN-GE-0504S-0097

PATIENT
  Age: 74 Year
  Sex: Male
  Weight: 72 kg

DRUGS (2)
  1. OMNISCAN [Suspect]
     Dosage: 15 ML, SINGLE DOSE, I.V.
     Route: 042
     Dates: start: 20050318, end: 20050318
  2. OMNISCAN [Suspect]

REACTIONS (1)
  - SEPSIS [None]
